FAERS Safety Report 24580723 (Version 1)
Quarter: 2024Q4

REPORT INFORMATION
  Report Type: Spontaneous
  Country: US (occurrence: None)
  Receive Date: 20241105
  Receipt Date: 20241105
  Transmission Date: 20250115
  Serious: Yes (Hospitalization, Other)
  Sender: Public
  Company Number: None

PATIENT
  Age: 0 Year
  Sex: Male
  Weight: 2.81 kg

DRUGS (2)
  1. VILAZODONE [Suspect]
     Active Substance: VILAZODONE
     Indication: Maternal exposure timing unspecified
     Dates: start: 20221218
  2. Clomid Maternal medication [Concomitant]

REACTIONS (7)
  - Exposure during pregnancy [None]
  - Maternal drugs affecting foetus [None]
  - Foetal distress syndrome [None]
  - Bradycardia foetal [None]
  - Transient tachypnoea of the newborn [None]
  - Low birth weight baby [None]
  - Drug withdrawal syndrome neonatal [None]

NARRATIVE: CASE EVENT DATE: 20230912
